FAERS Safety Report 23751435 (Version 2)
Quarter: 2024Q2

REPORT INFORMATION
  Report Type: Report from Study
  Country: CA (occurrence: None)
  Receive Date: 20240417
  Receipt Date: 20240425
  Transmission Date: 20240716
  Serious: Yes (Other)
  Sender: FDA-Public Use
  Company Number: CA-AMGEN-CANSL2024070060

PATIENT
  Age: 24 Year
  Sex: Female

DRUGS (6)
  1. METHOTREXATE [Suspect]
     Active Substance: METHOTREXATE
     Indication: Product used for unknown indication
     Dates: start: 1993, end: 2006
  2. ENBREL [Suspect]
     Active Substance: ETANERCEPT
     Indication: Rheumatoid arthritis
     Dates: start: 2004, end: 2022
  3. ENBREL [Suspect]
     Active Substance: ETANERCEPT
     Indication: Juvenile idiopathic arthritis
     Dates: start: 202303
  4. SIMPONI [Concomitant]
     Active Substance: GOLIMUMAB
     Dates: start: 2022
  5. PLAQUENIL [Concomitant]
     Active Substance: HYDROXYCHLOROQUINE SULFATE
     Dates: start: 2004, end: 2010
  6. NAPROXEN [Concomitant]
     Active Substance: NAPROXEN

REACTIONS (8)
  - Uveitis [Not Recovered/Not Resolved]
  - Rheumatoid arthritis [Not Recovered/Not Resolved]
  - Aspiration joint [Unknown]
  - Eczema [Unknown]
  - Asthma [Unknown]
  - Abdominal discomfort [Unknown]
  - Temporomandibular pain and dysfunction syndrome [Unknown]
  - Osteoarthritis [Unknown]

NARRATIVE: CASE EVENT DATE: 20050101
